FAERS Safety Report 9524967 (Version 1)
Quarter: 2013Q1

REPORT INFORMATION
  Report Type: Spontaneous
  Country: US (occurrence: None)
  Receive Date: 20130313
  Receipt Date: 20130313
  Transmission Date: 20140127
  Serious: No
  Sender: FDA-Public Use
  Company Number: 1000037321

PATIENT
  Age: 53 Year
  Sex: Female

DRUGS (5)
  1. SAVELLA (MILNACIPRAN HYDROCHLORIDE) (TABLETS) [Suspect]
     Indication: DEPRESSION
     Route: 048
     Dates: start: 201206, end: 2012
  2. CYMBALTA (DULOXETINE HYDROCHLORIDE) [Suspect]
     Indication: DEPRESSION
     Dates: end: 2012
  3. WELLBUTRIN (BUPROPION HYDROCHLORIDE) [Suspect]
     Dates: end: 2012
  4. CLONAZEPAM (CLONAZEPAM) (CLONAZEPAM) [Concomitant]
  5. LAMICTAL (LAMOTRIGINE) (LAMOTRIGINE) [Concomitant]

REACTIONS (4)
  - Nausea [None]
  - Malaise [None]
  - Headache [None]
  - Off label use [None]
